FAERS Safety Report 6337750-6 (Version None)
Quarter: 2009Q3

REPORT INFORMATION
  Report Type: 
  Country: None (occurrence: None)
  Receive Date: 20090902
  Receipt Date: 20090825
  Transmission Date: 20100115
  Serious: Yes (Death, Other)
  Sender: FDA-Public Use
  Company Number: KR-ELI_LILLY_AND_COMPANY-KR200908006020

PATIENT
  Age: 67 Year

DRUGS (2)
  1. GEMZAR [Suspect]
     Indication: NON-SMALL CELL LUNG CANCER
     Dosage: 1000 MG/M2, DAY 1 AND 8 EVERY3 WEEKS
  2. CARBOPLATIN [Concomitant]
     Indication: NON-SMALL CELL LUNG CANCER
     Dosage: 5 AUC, DAY 1 EVERY 3 WEEKS

REACTIONS (5)
  - ASPIRATION [None]
  - NAUSEA [None]
  - PNEUMONIA [None]
  - SEPTIC SHOCK [None]
  - VOMITING [None]
